FAERS Safety Report 16282079 (Version 1)
Quarter: 2019Q2

REPORT INFORMATION
  Report Type: Spontaneous
  Country: US (occurrence: US)
  Receive Date: 20190507
  Receipt Date: 20190507
  Transmission Date: 20190711
  Serious: No
  Sender: FDA-Public Use
  Company Number: US-JNJFOC-20190418065

PATIENT
  Sex: Female
  Weight: 62.6 kg

DRUGS (6)
  1. MENS ROGAINE EXTRA STRENGTH [Suspect]
     Active Substance: MINOXIDIL
     Indication: ALOPECIA
     Dosage: 2 DROPPERFULS TWICE DAILY
     Route: 061
  2. MENS ROGAINE EXTRA STRENGTH UNSCENTED [Suspect]
     Active Substance: MINOXIDIL
     Indication: ALOPECIA
     Dosage: 2 CAPFULS TWICE DAILY
     Route: 061
     Dates: end: 20190402
  3. SILICA [Concomitant]
     Active Substance: SILICON DIOXIDE
     Indication: HAIR GROWTH ABNORMAL
     Route: 065
  4. MENS ROGAINE EXTRA STRENGTH [Suspect]
     Active Substance: MINOXIDIL
     Route: 061
  5. PLAQUENIL [Concomitant]
     Active Substance: HYDROXYCHLOROQUINE SULFATE
     Indication: PRODUCT USED FOR UNKNOWN INDICATION
     Route: 065
  6. MENS ROGAINE EXTRA STRENGTH UNSCENTED [Suspect]
     Active Substance: MINOXIDIL
     Route: 061

REACTIONS (8)
  - Overdose [Unknown]
  - Breast mass [Not Recovered/Not Resolved]
  - Alopecia [Not Recovered/Not Resolved]
  - Product use issue [Unknown]
  - Pruritus [Recovered/Resolved]
  - Off label use [Unknown]
  - Skin exfoliation [Recovered/Resolved]
  - Dry skin [Recovered/Resolved]
